FAERS Safety Report 6127348-7 (Version None)
Quarter: 2009Q1

REPORT INFORMATION
  Report Type: 
  Country: None (occurrence: None)
  Receive Date: 20090319
  Receipt Date: 20090304
  Transmission Date: 20090719
  Serious: Yes (Hospitalization)
  Sender: FDA-Public Use
  Company Number: 2009000702

PATIENT
  Sex: Female

DRUGS (8)
  1. ERLOTINIB (ERLOTINIB) (TABLET) (ERLOTINIB) [Suspect]
     Indication: NEOPLASM MALIGNANT
     Dosage: 100 MG, ORAL
     Route: 048
     Dates: start: 20090209
  2. R04858696 [Suspect]
     Indication: NEOPLASM MALIGNANT
     Dosage: 217 MG, QW, INTRAVENOUS
     Route: 042
     Dates: start: 20090209
  3. GEMCITABINE [Suspect]
     Indication: NEOPLASM MALIGNANT
     Dosage: 1800 MG, QW, INTRAVENOUS
     Route: 042
     Dates: start: 20090209
  4. AMBIEN [Concomitant]
  5. COMPAZINE [Concomitant]
  6. HYDROMORPHONE HCL [Concomitant]
  7. METHADONE HCL [Concomitant]
  8. DOCUSATE SODIUM (DOCUSATE SODIUM) [Concomitant]

REACTIONS (2)
  - DEEP VEIN THROMBOSIS [None]
  - THROMBOCYTOPENIA [None]
